FAERS Safety Report 10251542 (Version 2)
Quarter: 2014Q4

REPORT INFORMATION
  Report Type: Spontaneous
  Country: DE (occurrence: DE)
  Receive Date: 20140623
  Receipt Date: 20141005
  Transmission Date: 20150528
  Serious: Yes (Other)
  Sender: FDA-Public Use
  Company Number: DE-JNJFOC-20140613746

PATIENT
  Sex: Female

DRUGS (3)
  1. XARELTO [Suspect]
     Active Substance: RIVAROXABAN
     Indication: EMBOLISM VENOUS
     Route: 048
     Dates: start: 201210, end: 20130101
  2. XARELTO [Suspect]
     Active Substance: RIVAROXABAN
     Indication: DEEP VEIN THROMBOSIS
     Route: 048
     Dates: start: 201210, end: 20130101
  3. XARELTO [Suspect]
     Active Substance: RIVAROXABAN
     Indication: INTERVERTEBRAL DISC PROTRUSION
     Route: 048
     Dates: start: 201210, end: 20130101

REACTIONS (28)
  - Eye irritation [Unknown]
  - Liver disorder [Unknown]
  - Throat irritation [Unknown]
  - Oral discomfort [Unknown]
  - Panic attack [Unknown]
  - Abdominal discomfort [Unknown]
  - Dizziness [Unknown]
  - Heart rate increased [Unknown]
  - Blood pressure increased [Unknown]
  - Lymphatic disorder [Unknown]
  - Hot flush [Unknown]
  - Anxiety [Unknown]
  - Renal disorder [Unknown]
  - Chest discomfort [Unknown]
  - Dyspepsia [Unknown]
  - Neuralgia [Unknown]
  - Retching [Unknown]
  - Biliary tract disorder [Unknown]
  - Haemorrhoids [Unknown]
  - Asthenia [Unknown]
  - Weight decreased [Unknown]
  - Glossodynia [Unknown]
  - Chills [Unknown]
  - Inflammation [Unknown]
  - Vasculitis [Unknown]
  - Dyspnoea [Unknown]
  - Oesophageal pain [Unknown]
  - Laryngeal disorder [Unknown]

NARRATIVE: CASE EVENT DATE: 201010
